FAERS Safety Report 21755402 (Version 1)
Quarter: 2022Q4

REPORT INFORMATION
  Report Type: Other
  Country: CN (occurrence: CN)
  Receive Date: 20221220
  Receipt Date: 20221220
  Transmission Date: 20230113
  Serious: Yes (Life-Threatening, Hospitalization)
  Sender: FDA-Public Use
  Company Number: CN-GE HEALTHCARE-2022CSU009084

PATIENT
  Age: 49 Year
  Sex: Male
  Weight: 60 kg

DRUGS (3)
  1. OMNIPAQUE [Suspect]
     Active Substance: IOHEXOL
     Indication: Imaging procedure
     Dosage: 50 ML, SINGLE
     Route: 042
     Dates: start: 20221121, end: 20221121
  2. OMNIPAQUE [Suspect]
     Active Substance: IOHEXOL
     Indication: Allergy test
  3. OMNIPAQUE [Suspect]
     Active Substance: IOHEXOL
     Indication: Nephrolithiasis

REACTIONS (5)
  - Stridor [Recovering/Resolving]
  - Dyspnoea [Recovering/Resolving]
  - Blood pressure increased [Recovering/Resolving]
  - Pyrexia [Recovering/Resolving]
  - Chills [Recovering/Resolving]

NARRATIVE: CASE EVENT DATE: 20221121
